FAERS Safety Report 9753790 (Version 1)
Quarter: 2013Q4

REPORT INFORMATION
  Report Type: Spontaneous
  Country: US (occurrence: US)
  Receive Date: 20131213
  Receipt Date: 20131213
  Transmission Date: 20140711
  Serious: No
  Sender: FDA-Public Use
  Company Number: US-GILEAD-2010-0027074

PATIENT
  Sex: Male

DRUGS (11)
  1. LETAIRIS [Suspect]
     Indication: PULMONARY ARTERIAL HYPERTENSION
     Route: 048
     Dates: start: 20091119
  2. FUROSEMIDE [Concomitant]
  3. LOTREL [Concomitant]
  4. INDOMETHACIN [Concomitant]
  5. ALLOPURINOL [Concomitant]
  6. LIPITOR [Concomitant]
  7. GLIMEPIRIDE [Concomitant]
  8. PULMICORT [Concomitant]
  9. COMBIVENT [Concomitant]
  10. VITAMIN D [Concomitant]
  11. BROVANA [Concomitant]

REACTIONS (1)
  - Tremor [Unknown]
